FAERS Safety Report 10583088 (Version 1)
Quarter: 2014Q4

REPORT INFORMATION
  Report Type: Spontaneous
  Country: DE (occurrence: DE)
  Receive Date: 20141114
  Receipt Date: 20141114
  Transmission Date: 20150529
  Serious: Yes (Congenital Anomaly, Other)
  Sender: FDA-Public Use
  Company Number: DE-DRREDDYS-GER/GER/14/0044296

PATIENT
  Age: 1 Day
  Sex: Male
  Weight: 2.73 kg

DRUGS (2)
  1. LAMOTRIGINE. [Suspect]
     Active Substance: LAMOTRIGINE
     Indication: PRODUCT USED FOR UNKNOWN INDICATION
     Route: 064
     Dates: start: 20121210, end: 20130909
  2. FOLS?URE RATIOPHARM [Concomitant]
     Indication: PRODUCT USED FOR UNKNOWN INDICATION
     Route: 064
     Dates: start: 20121210, end: 20130718

REACTIONS (8)
  - Meningomyelocele [Not Recovered/Not Resolved]
  - Breech presentation [Unknown]
  - Tethered cord syndrome [Not Recovered/Not Resolved]
  - Foetal exposure during pregnancy [Unknown]
  - Syringomyelia [Not Recovered/Not Resolved]
  - Hypoglycaemia neonatal [Recovered/Resolved]
  - Small for dates baby [Unknown]
  - Foramen magnum stenosis [Not Recovered/Not Resolved]

NARRATIVE: CASE EVENT DATE: 20130909
